FAERS Safety Report 12665623 (Version 1)
Quarter: 2016Q3

REPORT INFORMATION
  Report Type: Spontaneous
  Country: US (occurrence: US)
  Receive Date: 20160818
  Receipt Date: 20160818
  Transmission Date: 20161109
  Serious: Yes (Other)
  Sender: FDA-Public Use
  Company Number: US-TEVA-686240USA

PATIENT
  Age: 21 Year
  Sex: Female

DRUGS (11)
  1. DOXYCYCLINE. [Concomitant]
     Active Substance: DOXYCYCLINE
     Indication: HIDRADENITIS
  2. CEPHALEXIN. [Concomitant]
     Active Substance: CEPHALEXIN
     Indication: HIDRADENITIS
  3. TRIAMCINOLONE [Concomitant]
     Active Substance: TRIAMCINOLONE
     Indication: HIDRADENITIS
  4. CLARAVIS [Suspect]
     Active Substance: ISOTRETINOIN
     Route: 065
  5. TRIAMCINOLONE 0.1% [Concomitant]
     Indication: KERATOSIS FOLLICULAR
  6. CLINDAMYCIN [Concomitant]
     Active Substance: CLINDAMYCIN\CLINDAMYCIN PHOSPHATE
     Indication: HIDRADENITIS
     Route: 061
  7. TRETINOIN 0.1% [Concomitant]
     Indication: KERATOSIS FOLLICULAR
  8. CLOBETASOL 0.05% [Concomitant]
     Active Substance: CLOBETASOL
     Indication: KERATOSIS FOLLICULAR
  9. UREA 40% [Concomitant]
     Indication: KERATOSIS FOLLICULAR
  10. ADAPALENE 0.1% [Concomitant]
     Indication: KERATOSIS FOLLICULAR
  11. CHLORHEXIDINE [Concomitant]
     Active Substance: CHLORHEXIDINE
     Indication: HIDRADENITIS

REACTIONS (1)
  - Suicidal ideation [Unknown]
